FAERS Safety Report 22070210 (Version 1)
Quarter: 2023Q1

REPORT INFORMATION
  Report Type: Other
  Country: None (occurrence: ES)
  Receive Date: 20230307
  Receipt Date: 20230307
  Transmission Date: 20230418
  Serious: Yes (Other)
  Sender: FDA-Public Use
  Company Number: ES-B.Braun Medical Inc.-2138775

PATIENT
  Age: 60 Year
  Sex: Female

DRUGS (1)
  1. SODIUM CHLORIDE FOR IRRIGATION [Suspect]
     Active Substance: SODIUM CHLORIDE
     Indication: Cyst aspiration

REACTIONS (2)
  - Hypernatraemia [Recovered/Resolved]
  - Hypotension [Recovered/Resolved]
